FAERS Safety Report 20745881 (Version 19)
Quarter: 2025Q3

REPORT INFORMATION
  Report Type: Report from Study
  Country: AR (occurrence: AR)
  Receive Date: 20220425
  Receipt Date: 20250818
  Transmission Date: 20251021
  Serious: Yes (Hospitalization, Other)
  Sender: NOVARTIS
  Company Number: AR-NOVARTISPH-NVSC2022AR026789

PATIENT
  Age: 57 Year
  Sex: Female

DRUGS (5)
  1. KISQALI [Suspect]
     Active Substance: RIBOCICLIB SUCCINATE
     Indication: Breast cancer metastatic
     Dosage: 600 MG, QD (600 MG, QD (THROUGH THE MOUTH)), (600 MG (MILLIGRAM) / 3 OF 200 MG)
     Route: 048
     Dates: start: 20220118, end: 20230429
  2. KISQALI [Suspect]
     Active Substance: RIBOCICLIB SUCCINATE
     Route: 065
     Dates: end: 20240201
  3. KISQALI [Suspect]
     Active Substance: RIBOCICLIB SUCCINATE
     Route: 065
     Dates: start: 202405, end: 20250330
  4. LETROZOLE [Suspect]
     Active Substance: LETROZOLE
     Indication: Breast cancer metastatic
     Dosage: 2.5 MG, QD (1 OF 2.5 MG)
     Route: 048
     Dates: start: 20220118
  5. ZOLEDRONIC ACID [Suspect]
     Active Substance: ZOLEDRONIC ACID
     Indication: Breast cancer metastatic
     Dosage: 4 MG, Q3MO
     Route: 065
     Dates: start: 20220118

REACTIONS (29)
  - Cerebrovascular accident [Unknown]
  - Pleural effusion [Unknown]
  - Dyspnoea [Unknown]
  - Hepatitis C [Unknown]
  - Metastases to bone [Unknown]
  - Breast cancer metastatic [Unknown]
  - Invasive lobular breast carcinoma [Unknown]
  - Hormone receptor positive HER2 negative breast cancer [Unknown]
  - Malignant neoplasm progression [Unknown]
  - Thrombocytopenia [Unknown]
  - Discomfort [Unknown]
  - Dysstasia [Unknown]
  - Influenza [Unknown]
  - Conjunctivitis [Unknown]
  - Malaise [Unknown]
  - Peripheral swelling [Unknown]
  - Alopecia [Unknown]
  - Platelet count decreased [Unknown]
  - Dengue fever [Recovered/Resolved]
  - Amnesia [Unknown]
  - Pain in extremity [Recovered/Resolved]
  - Arthralgia [Recovered/Resolved]
  - Inappropriate schedule of product administration [Unknown]
  - Product availability issue [Unknown]
  - Inflammation [Unknown]
  - Pain [Unknown]
  - Off label use [Unknown]
  - Groin pain [Not Recovered/Not Resolved]
  - Pain in extremity [Unknown]

NARRATIVE: CASE EVENT DATE: 20220301
